FAERS Safety Report 16757324 (Version 2)
Quarter: 2019Q3

REPORT INFORMATION
  Report Type: Spontaneous
  Country: US (occurrence: US)
  Receive Date: 20190829
  Receipt Date: 20190920
  Transmission Date: 20191005
  Serious: No
  Sender: FDA-Public Use
  Company Number: US-LEO PHARMA-323884

PATIENT
  Sex: Female

DRUGS (1)
  1. PICATO [Suspect]
     Active Substance: INGENOL MEBUTATE
     Indication: ACTINIC CHEILITIS
     Dosage: USE TWICE A DAY FOR THREE DAYS ON LIP/LIP LINE
     Route: 061
     Dates: start: 20190815, end: 20190815

REACTIONS (7)
  - Gingival bleeding [Recovered/Resolved]
  - Swollen tongue [Recovered/Resolved]
  - Product use in unapproved indication [Unknown]
  - Tongue discomfort [Not Recovered/Not Resolved]
  - Application site vesicles [Not Recovered/Not Resolved]
  - Tongue blistering [Not Recovered/Not Resolved]
  - Paraesthesia oral [Not Recovered/Not Resolved]

NARRATIVE: CASE EVENT DATE: 20190816
